FAERS Safety Report 14769766 (Version 2)
Quarter: 2019Q2

REPORT INFORMATION
  Report Type: Spontaneous
  Country: US (occurrence: US)
  Receive Date: 20180417
  Receipt Date: 20190402
  Transmission Date: 20190711
  Serious: Yes (Other)
  Sender: FDA-Public Use
  Company Number: US-GLAXOSMITHKLINE-US2018GSK066009

PATIENT
  Sex: Male

DRUGS (3)
  1. PREVACID [Suspect]
     Active Substance: LANSOPRAZOLE
     Indication: PRODUCT USED FOR UNKNOWN INDICATION
     Dosage: UNK
     Route: 065
  2. PREVACID [Suspect]
     Active Substance: LANSOPRAZOLE
     Indication: PRODUCT USED FOR UNKNOWN INDICATION
     Dosage: UNK
     Route: 065
  3. PANTOPRAZOLE [Suspect]
     Active Substance: PANTOPRAZOLE
     Indication: PRODUCT USED FOR UNKNOWN INDICATION
     Dosage: UNK
     Route: 065
     Dates: start: 201008, end: 201305

REACTIONS (8)
  - Mesangioproliferative glomerulonephritis [Unknown]
  - Haematuria [Unknown]
  - Renal impairment [Unknown]
  - Nephropathy [Unknown]
  - Nephritis [Unknown]
  - Tubulointerstitial nephritis [Unknown]
  - Chronic kidney disease [Unknown]
  - Acute kidney injury [Unknown]
